FAERS Safety Report 17380207 (Version 1)
Quarter: 2020Q1

REPORT INFORMATION
  Report Type: Spontaneous
  Country: US (occurrence: US)
  Receive Date: 20200206
  Receipt Date: 20200206
  Transmission Date: 20200409
  Serious: Yes (Other)
  Sender: FDA-Public Use
  Company Number: None

PATIENT
  Age: 9 Year
  Sex: Female
  Weight: 38.7 kg

DRUGS (5)
  1. (NATURE^S PLUS ANIMAL PARADE GOLD) PROBIOTIC [Concomitant]
  2. (JARROW FORMULA) LIQUID MAGNESIUM [Concomitant]
  3. MULTIVITAMIN- 2 CHEWABLE [Concomitant]
  4. TOPIRAMATE CAPSULES, USP 25MG [Suspect]
     Active Substance: TOPIRAMATE
     Indication: SEIZURE
     Dosage: ?          QUANTITY:2 CAPSULE(S);?
     Route: 048
     Dates: start: 20200114, end: 20200204
  5. (NATURES PLUS ACIDOPHI KIDS)B12 LOZENGES [Concomitant]

REACTIONS (18)
  - Intentional self-injury [None]
  - Hypophagia [None]
  - Somnolence [None]
  - Throat irritation [None]
  - Blood ketone body increased [None]
  - Disturbance in attention [None]
  - Eye infection [None]
  - Crying [None]
  - Blood urine present [None]
  - Specific gravity urine increased [None]
  - Eye swelling [None]
  - Mood swings [None]
  - Eye discharge [None]
  - Lip dry [None]
  - Vomiting [None]
  - Urinary tract infection [None]
  - Pyrexia [None]
  - Dysuria [None]

NARRATIVE: CASE EVENT DATE: 20200204
